FAERS Safety Report 9861286 (Version 1)
Quarter: 2014Q1

REPORT INFORMATION
  Report Type: Spontaneous
  Country: BR (occurrence: BR)
  Receive Date: 20140202
  Receipt Date: 20140202
  Transmission Date: 20141002
  Serious: No
  Sender: FDA-Public Use
  Company Number: BR-ALLERGAN-1304288US

PATIENT
  Age: 23 Year
  Sex: Female
  Weight: 50 kg

DRUGS (2)
  1. BOTOX [Suspect]
     Indication: HYPERHIDROSIS
     Dosage: 150 UNITS, SINGLE
     Route: 023
     Dates: start: 20121107, end: 20121107
  2. BOTOX [Suspect]
     Indication: HYPERHIDROSIS
     Dosage: 150 UNITS, SINGLE
     Route: 023
     Dates: start: 20121107, end: 20121107

REACTIONS (3)
  - Off label use [Unknown]
  - Drug ineffective [Unknown]
  - Off label use [Unknown]
